FAERS Safety Report 12191309 (Version 3)
Quarter: 2016Q2

REPORT INFORMATION
  Report Type: Spontaneous
  Country: CO (occurrence: CO)
  Receive Date: 20160318
  Receipt Date: 20160518
  Transmission Date: 20160815
  Serious: Yes (Other)
  Sender: FDA-Public Use
  Company Number: CO-AMGEN-COLSP2015088577

PATIENT
  Age: 51 Year
  Sex: Female

DRUGS (8)
  1. PREGABALINA [Concomitant]
     Active Substance: PREGABALIN
     Dosage: 150 MG, UNK
     Dates: start: 2011
  2. PREGABALINA [Concomitant]
     Active Substance: PREGABALIN
     Dosage: 25 UNK, UNK
     Dates: start: 201602
  3. ATORVASTATIN [Concomitant]
     Active Substance: ATORVASTATIN
     Dosage: UNK
     Dates: start: 2015
  4. DULOXETINA                         /01749301/ [Concomitant]
     Dosage: 60 MG, UNK
     Dates: start: 2011
  5. DULOXETINA                         /01749301/ [Concomitant]
     Dosage: 60 MG, UNK
     Dates: start: 2011
  6. HYDROCODONE BITARTRATE AND ACETAMINOPHEN [Concomitant]
     Active Substance: ACETAMINOPHEN\HYDROCODONE BITARTRATE
     Dosage: 330 MG, UNK
     Dates: start: 2011
  7. ENBREL [Suspect]
     Active Substance: ETANERCEPT
     Indication: ANKYLOSING SPONDYLITIS
     Dosage: 50 MG, WEEKLY
     Route: 058
     Dates: start: 2013
  8. ENBREL [Suspect]
     Active Substance: ETANERCEPT
     Dosage: 50 MG, WEEKLY
     Route: 058
     Dates: start: 2014

REACTIONS (2)
  - Sudden hearing loss [Not Recovered/Not Resolved]
  - Epicondylitis [Not Recovered/Not Resolved]

NARRATIVE: CASE EVENT DATE: 201508
